FAERS Safety Report 15371978 (Version 2)
Quarter: 2018Q4

REPORT INFORMATION
  Report Type: Spontaneous
  Country: US (occurrence: US)
  Receive Date: 20180911
  Receipt Date: 20181019
  Transmission Date: 20190204
  Serious: Yes (Other)
  Sender: FDA-Public Use
  Company Number: US-REGENERON PHARMACEUTICALS, INC.-2018-36371

PATIENT

DRUGS (5)
  1. AREDSAN [Concomitant]
     Indication: MACULAR DEGENERATION
     Dosage: UNK
     Dates: start: 2013
  2. EYLEA [Suspect]
     Active Substance: AFLIBERCEPT
     Indication: DIABETIC RETINAL OEDEMA
     Dosage: 2 MG, EVERY 6 WEEKS, RIGHT EYE (OD)
     Route: 031
     Dates: start: 20180403
  3. EYLEA [Suspect]
     Active Substance: AFLIBERCEPT
     Dosage: LAST INJECTION
     Route: 031
     Dates: start: 20180906, end: 20180906
  4. GLIPIZIDE. [Concomitant]
     Active Substance: GLIPIZIDE
     Indication: PRODUCT USED FOR UNKNOWN INDICATION
     Dosage: IN THE MORNING
  5. METFORMIN [Concomitant]
     Active Substance: METFORMIN HYDROCHLORIDE
     Indication: PRODUCT USED FOR UNKNOWN INDICATION
     Dosage: UNK UNK, BID

REACTIONS (6)
  - Cataract [Unknown]
  - Eye infection [Not Recovered/Not Resolved]
  - Eye irritation [Recovered/Resolved]
  - Eye pain [Unknown]
  - Wrong technique in product usage process [Unknown]
  - Abnormal sensation in eye [Unknown]

NARRATIVE: CASE EVENT DATE: 2018
